FAERS Safety Report 5404714-6 (Version None)
Quarter: 2007Q3

REPORT INFORMATION
  Report Type: 
  Country: None (occurrence: None)
  Receive Date: 20070801
  Receipt Date: 20070511
  Transmission Date: 20080115
  Serious: Yes (Hospitalization)
  Sender: FDA-Public Use
  Company Number: 16536

PATIENT
  Age: 73 Year
  Sex: Male

DRUGS (4)
  1. MITOXANTRONE [Suspect]
     Dosage: 10.5 MG
  2. FLUDARABINE PHOSPHATE [Suspect]
     Dosage: 20 MG PO
     Route: 048
  3. CYCLOPHOSPHAMIDE [Suspect]
     Dosage: 250 MG
  4. MABTHERA. MFR. NOT SPECIFIED [Suspect]
     Dates: start: 20060508

REACTIONS (1)
  - DIPLOPIA [None]
